FAERS Safety Report 7399367-4 (Version None)
Quarter: 2011Q2

REPORT INFORMATION
  Report Type: 
  Country: None (occurrence: None)
  Receive Date: 20110407
  Receipt Date: 20110329
  Transmission Date: 20111010
  Serious: Yes (Death)
  Sender: FDA-Public Use
  Company Number: JP-NOVOPROD-325492

PATIENT
  Age: 57 Year
  Sex: Male
  Weight: 89 kg

DRUGS (4)
  1. AMARYL [Concomitant]
     Dosage: 1 MG, QD
     Route: 048
  2. VICTOZA [Suspect]
     Indication: TYPE 2 DIABETES MELLITUS
     Dosage: 0.3 MG, QD
     Route: 058
     Dates: start: 20110213
  3. ALLOPURINOL [Concomitant]
     Dosage: UNK
     Route: 048
  4. VICTOZA [Suspect]
     Dosage: 0.6 MG, QD
     Route: 058
     Dates: start: 20110228

REACTIONS (1)
  - CARDIO-RESPIRATORY ARREST [None]
